FAERS Safety Report 24404899 (Version 1)
Quarter: 2024Q4

REPORT INFORMATION
  Report Type: Report from Study
  Country: PK (occurrence: PK)
  Receive Date: 20241007
  Receipt Date: 20241007
  Transmission Date: 20250115
  Serious: No
  Sender: ROCHE
  Company Number: PK-ROCHE-3545952

PATIENT
  Age: 54 Year
  Sex: Female

DRUGS (1)
  1. GAZYVA [Suspect]
     Active Substance: OBINUTUZUMAB
     Indication: Follicular lymphoma
     Dosage: 8 CYCLES
     Route: 041
     Dates: start: 20240408

REACTIONS (2)
  - Drug ineffective [Unknown]
  - No adverse event [Unknown]
